FAERS Safety Report 6275390-8 (Version None)
Quarter: 2009Q3

REPORT INFORMATION
  Report Type: 
  Country: None (occurrence: None)
  Receive Date: 20090721
  Receipt Date: 20090713
  Transmission Date: 20100115
  Serious: Yes (Hospitalization, Disabling, Other)
  Sender: FDA-Public Use
  Company Number: AT-AMGEN-UK350650

PATIENT
  Sex: Female

DRUGS (8)
  1. ROMIPLOSTIM [Suspect]
     Indication: IDIOPATHIC THROMBOCYTOPENIC PURPURA
     Route: 058
     Dates: start: 20090423
  2. ROMIPLOSTIM - STUDY PROCEDURE [Suspect]
  3. MEXALEN [Concomitant]
     Route: 065
     Dates: start: 20090523
  4. SEREVENT [Concomitant]
     Route: 050
     Dates: start: 20090523
  5. PANTOPRAZOLE SODIUM [Concomitant]
     Route: 065
  6. DILTIAZEM [Concomitant]
     Route: 065
  7. SELOKEN [Concomitant]
     Route: 065
  8. AZELASTINE HCL [Concomitant]
     Route: 047

REACTIONS (4)
  - LYMPHADENOPATHY [None]
  - METASTASES TO LYMPH NODES [None]
  - MUCOSAL HAEMORRHAGE [None]
  - VENOUS THROMBOSIS [None]
